FAERS Safety Report 24117390 (Version 1)
Quarter: 2024Q3

REPORT INFORMATION
  Report Type: Report from Study
  Country: US (occurrence: None)
  Receive Date: 20240722
  Receipt Date: 20240722
  Transmission Date: 20241017
  Serious: Yes (Hospitalization)
  Sender: ASTRAZENECA
  Company Number: 2020SE84551

PATIENT
  Sex: Female

DRUGS (1)
  1. FASENRA [Suspect]
     Active Substance: BENRALIZUMAB
     Indication: Asthma
     Dosage: INJECT ONE SYRINGE (30 MG) UNDER THE SKIN AT WEEK 8, THEN EVERY 8 WEEKS THEREAFTER
     Route: 058

REACTIONS (1)
  - Gallbladder disorder [Unknown]
